FAERS Safety Report 7373322-2 (Version None)
Quarter: 2011Q1

REPORT INFORMATION
  Report Type: 
  Country: None (occurrence: None)
  Receive Date: 20110324
  Receipt Date: 20110315
  Transmission Date: 20110831
  Serious: Yes (Other)
  Sender: FDA-Public Use
  Company Number: US-ASTRAZENECA-2011SE15016

PATIENT
  Age: 67 Year
  Sex: Male

DRUGS (2)
  1. SYMBICORT [Suspect]
     Dosage: AS REQUIRED
     Route: 055
  2. NEXIUM [Suspect]
     Route: 048

REACTIONS (7)
  - HIATUS HERNIA [None]
  - SPINAL COLUMN INJURY [None]
  - TRAUMATIC LUNG INJURY [None]
  - NEOPLASM MALIGNANT [None]
  - COMPLEX REGIONAL PAIN SYNDROME [None]
  - ELECTRIC SHOCK [None]
  - CHRONIC OBSTRUCTIVE PULMONARY DISEASE [None]
